FAERS Safety Report 12540685 (Version 1)
Quarter: 2016Q3

REPORT INFORMATION
  Report Type: Spontaneous
  Country: US (occurrence: US)
  Receive Date: 20160708
  Receipt Date: 20160708
  Transmission Date: 20161109
  Serious: No
  Sender: FDA-Public Use
  Company Number: US-TEVA-654706USA

PATIENT
  Age: 30 Year
  Sex: Female

DRUGS (2)
  1. ZECUITY [Suspect]
     Active Substance: SUMATRIPTAN SUCCINATE
     Dosage: 6.5 MG/4 HOURS
     Route: 062
     Dates: start: 20160419, end: 20160419
  2. ZECUITY [Suspect]
     Active Substance: SUMATRIPTAN SUCCINATE
     Dosage: 6.5 MG/4 HOURS
     Route: 062
     Dates: start: 20160420, end: 20160420

REACTIONS (5)
  - Application site pruritus [Unknown]
  - Application site pain [Not Recovered/Not Resolved]
  - Application site erythema [Not Recovered/Not Resolved]
  - Application site urticaria [Unknown]
  - Product leakage [Unknown]

NARRATIVE: CASE EVENT DATE: 20160420
